FAERS Safety Report 6092278-6 (Version None)
Quarter: 2009Q1

REPORT INFORMATION
  Report Type: 
  Country: None (occurrence: None)
  Receive Date: 20090225
  Receipt Date: 20090219
  Transmission Date: 20090719
  Serious: Yes (Other)
  Sender: FDA-Public Use
  Company Number: B0557659A

PATIENT
  Age: 18 Year
  Sex: Male

DRUGS (2)
  1. RELENZA [Suspect]
     Indication: INFLUENZA
     Dosage: 10MG TWICE PER DAY
     Route: 055
     Dates: start: 20090129, end: 20090130
  2. LACTEC [Concomitant]
     Indication: DEHYDRATION
     Route: 042
     Dates: start: 20090129

REACTIONS (6)
  - ABNORMAL BEHAVIOUR [None]
  - BODY TEMPERATURE INCREASED [None]
  - HYPERHIDROSIS [None]
  - HYPERVENTILATION [None]
  - MEMORY IMPAIRMENT [None]
  - TACHYPNOEA [None]
